FAERS Safety Report 24278351 (Version 2)
Quarter: 2024Q3

REPORT INFORMATION
  Report Type: Spontaneous
  Country: US (occurrence: US)
  Receive Date: 20240903
  Receipt Date: 20240927
  Transmission Date: 20241016
  Serious: Yes (Other)
  Sender: BAYER
  Company Number: US-BAYER-2024A124618

PATIENT
  Age: 38 Year
  Sex: Male
  Weight: 76 kg

DRUGS (3)
  1. JIVI [Suspect]
     Active Substance: DAMOCTOCOG ALFA PEGOL
     Indication: Factor VIII deficiency
     Dosage: 3000 IU
     Route: 042
     Dates: start: 202303
  2. JIVI [Suspect]
     Active Substance: DAMOCTOCOG ALFA PEGOL
     Indication: Factor VIII deficiency
     Dosage: SLOW IV PUSH TWICE WEEKLY FOR PROPHY AND AS DIRECTED FOR BLEEDS
     Route: 042
  3. JIVI [Suspect]
     Active Substance: DAMOCTOCOG ALFA PEGOL
     Indication: Factor VIII deficiency
     Dosage: 3000 / 3500 UNITS
     Route: 042
     Dates: start: 20240911

REACTIONS (4)
  - Haemarthrosis [None]
  - Haemarthrosis [None]
  - Weight decreased [None]
  - Weight increased [None]

NARRATIVE: CASE EVENT DATE: 20240817
